FAERS Safety Report 4970520-X (Version None)
Quarter: 2006Q2

REPORT INFORMATION
  Report Type: 
  Country: None (occurrence: None)
  Receive Date: 20060406
  Receipt Date: 20060327
  Transmission Date: 20061013
  Serious: Yes (Hospitalization, Disabling, Other)
  Sender: FDA-Public Use
  Company Number: 2006RR-01880

PATIENT
  Age: 39 Year
  Sex: Female
  Weight: 60 kg

DRUGS (4)
  1. IBUPROFEN [Suspect]
     Dosage: ORAL
     Route: 048
     Dates: start: 20060318
  2. PROPANOLOL (PROPANOL) [Concomitant]
  3. DESLORATADINE (DESLORATADINE) [Concomitant]
  4. VENLAFAXINE HCL [Concomitant]

REACTIONS (4)
  - DYSPNOEA [None]
  - HYPERSENSITIVITY [None]
  - RASH [None]
  - SWOLLEN TONGUE [None]
